FAERS Safety Report 11349943 (Version 2)
Quarter: 2016Q4

REPORT INFORMATION
  Report Type: Spontaneous
  Country: US (occurrence: US)
  Receive Date: 20150807
  Receipt Date: 20161108
  Transmission Date: 20170206
  Serious: Yes (Other)
  Sender: FDA-Public Use
  Company Number: US-AMGEN-USASP2015079129

PATIENT
  Age: 45 Year
  Sex: Female
  Weight: 78.91 kg

DRUGS (2)
  1. ENBREL [Suspect]
     Active Substance: ETANERCEPT
     Indication: PSORIATIC ARTHROPATHY
     Dosage: UNK
     Route: 065
  2. ENBREL [Suspect]
     Active Substance: ETANERCEPT
     Indication: RHEUMATOID ARTHRITIS
     Dosage: UNK UNK, QWK
     Route: 065

REACTIONS (7)
  - Tooth extraction [Unknown]
  - Tooth fracture [Unknown]
  - Pneumonia [Unknown]
  - Surgery [Unknown]
  - Back pain [Recovering/Resolving]
  - Rash pruritic [Unknown]
  - Injection site pain [Unknown]
